FAERS Safety Report 24120092 (Version 1)
Quarter: 2024Q3

REPORT INFORMATION
  Report Type: Spontaneous
  Country: US (occurrence: None)
  Receive Date: 20240718
  Receipt Date: 20240718
  Transmission Date: 20241017
  Serious: Yes (Other)
  Sender: Public
  Company Number: None

PATIENT
  Age: 68 Year
  Sex: Female
  Weight: 103.5 kg

DRUGS (20)
  1. METFORMIN ER 500 MG [Suspect]
     Active Substance: METFORMIN HYDROCHLORIDE
     Indication: Blood glucose abnormal
     Dosage: OTHER QUANTITY : 2 TABLET(S);?FREQUENCY : DAILY;?
     Dates: start: 20230110, end: 20230509
  2. BREO ELLIPTA [Concomitant]
     Active Substance: FLUTICASONE FUROATE\VILANTEROL TRIFENATATE
  3. ALBUTEROL [Concomitant]
     Active Substance: ALBUTEROL
  4. THYROID [Concomitant]
     Active Substance: LEVOTHYROXINE\LIOTHYRONINE
  5. ESTRACE [Concomitant]
     Active Substance: ESTRADIOL
  6. DEVICE [Concomitant]
     Active Substance: DEVICE
  7. FLONASE [Concomitant]
     Active Substance: FLUTICASONE PROPIONATE
  8. VITAMIN B6 [Concomitant]
     Active Substance: PYRIDOXINE HYDROCHLORIDE
  9. METHYLCOBALAMIN [Concomitant]
     Active Substance: METHYLCOBALAMIN
  10. MULTI [Concomitant]
  11. D [Concomitant]
  12. TOCOPHEROL [Concomitant]
     Active Substance: TOCOPHEROL
  13. COD LIVER OIL [Concomitant]
     Active Substance: COD LIVER OIL
  14. CURCUMIN [Concomitant]
     Active Substance: CURCUMIN
  15. zeaxanthan [Concomitant]
  16. ALA [Concomitant]
  17. ZINC [Concomitant]
     Active Substance: ZINC
  18. MAGNESIUM [Concomitant]
     Active Substance: MAGNESIUM
  19. Boswelia [Concomitant]
  20. TAURINE [Concomitant]
     Active Substance: TAURINE

REACTIONS (2)
  - Tachycardia [None]
  - Non-alcoholic steatohepatitis [None]

NARRATIVE: CASE EVENT DATE: 20230508
